FAERS Safety Report 10456897 (Version 3)
Quarter: 2015Q2

REPORT INFORMATION
  Report Type: Spontaneous
  Country: US (occurrence: US)
  Receive Date: 20140916
  Receipt Date: 20150601
  Transmission Date: 20150821
  Serious: Yes (Other)
  Sender: FDA-Public Use
  Company Number: US-BAYER-2014-136892

PATIENT
  Age: 24 Year
  Sex: Female
  Weight: 69.39 kg

DRUGS (1)
  1. MIRENA [Suspect]
     Active Substance: LEVONORGESTREL
     Indication: CONTRACEPTION
     Dosage: 20 MCG/24HR, CONT
     Route: 015
     Dates: start: 20140709

REACTIONS (8)
  - Pregnancy with contraceptive device [None]
  - Fatigue [None]
  - Haemorrhage in pregnancy [None]
  - Embedded device [None]
  - Malaise [None]
  - Medication error [None]
  - Hypersomnia [None]
  - Vomiting [None]
